FAERS Safety Report 5771625-6 (Version None)
Quarter: 2008Q2

REPORT INFORMATION
  Report Type: 
  Country: None (occurrence: None)
  Receive Date: 20080612
  Receipt Date: 20080612
  Transmission Date: 20081010
  Serious: Yes (Life-Threatening)
  Sender: FDA-Public Use
  Company Number: None

PATIENT

DRUGS (1)
  1. DIGITEK [Suspect]

REACTIONS (3)
  - CHROMATOPSIA [None]
  - FATIGUE [None]
  - SENSATION OF HEAVINESS [None]
